FAERS Safety Report 11378889 (Version 1)
Quarter: 2015Q3

REPORT INFORMATION
  Report Type: Spontaneous
  Country: US (occurrence: US)
  Receive Date: 20150811
  Receipt Date: 20150811
  Transmission Date: 20151125
  Serious: No
  Sender: FDA-Public Use
  Company Number: US-ELI_LILLY_AND_COMPANY-US200709006226

PATIENT
  Age: 51 Year
  Sex: Male

DRUGS (4)
  1. GLYCOLAX [Concomitant]
     Active Substance: POLYETHYLENE GLYCOL 3350
  2. HYOSCYAMINE. [Concomitant]
     Active Substance: HYOSCYAMINE
  3. METOCLOPRAMID [Concomitant]
     Active Substance: METOCLOPRAMIDE
  4. CIALIS [Suspect]
     Active Substance: TADALAFIL
     Indication: ERECTILE DYSFUNCTION

REACTIONS (1)
  - Coeliac disease [Unknown]
